FAERS Safety Report 5684624-X (Version None)
Quarter: 2008Q1

REPORT INFORMATION
  Report Type: 
  Country: None (occurrence: None)
  Receive Date: 20080328
  Receipt Date: 20080320
  Transmission Date: 20080703
  Serious: Yes (Hospitalization)
  Sender: FDA-Public Use
  Company Number: AU-ROCHE-549679

PATIENT
  Age: 54 Year
  Sex: Female
  Weight: 74 kg

DRUGS (9)
  1. CAPECITABINE [Suspect]
     Route: 065
     Dates: start: 20080206, end: 20080208
  2. BLINDED BEVACIZUMAB [Suspect]
     Dosage: DOSAGE FORM: AMPULE.
     Route: 042
  3. GEMCITABINE HCL [Suspect]
     Route: 065
  4. LIPITOR [Concomitant]
     Dates: start: 20070927
  5. LEVOTHYROXINE SODIUM [Concomitant]
     Dates: start: 20070927
  6. NEUROFEN [Concomitant]
     Dates: start: 20070223
  7. PANADEINE [Concomitant]
     Dates: start: 20061230
  8. TELFAST [Concomitant]
     Dates: start: 20061227
  9. LOSEC I.V. [Concomitant]
     Dates: start: 20061211

REACTIONS (1)
  - ARTERIOSPASM CORONARY [None]
